FAERS Safety Report 9887499 (Version 1)
Quarter: 2014Q1

REPORT INFORMATION
  Report Type: Spontaneous
  Country: US (occurrence: None)
  Receive Date: 20140207
  Receipt Date: 20140207
  Transmission Date: 20141002
  Serious: No
  Sender: FDA-Public Use
  Company Number: None

PATIENT
  Age: 71 Year
  Sex: Male
  Weight: 86.4 kg

DRUGS (1)
  1. MOXIFLOXACIN [Suspect]
     Route: 048
     Dates: start: 20110106, end: 20110106

REACTIONS (1)
  - Dyspnoea [None]
